FAERS Safety Report 17680625 (Version 4)
Quarter: 2022Q1

REPORT INFORMATION
  Report Type: Spontaneous
  Country: PL (occurrence: PL)
  Receive Date: 20200417
  Receipt Date: 20220201
  Transmission Date: 20220423
  Serious: Yes (Hospitalization)
  Sender: FDA-Public Use
  Company Number: None

PATIENT
  Age: 25 Year
  Sex: Male

DRUGS (10)
  1. TERBINAFINE [Suspect]
     Active Substance: TERBINAFINE
     Indication: Trichophytosis
     Dosage: 250 MG, QD (DRUG CONTINUED FOR 30 DAYS)
     Route: 048
     Dates: start: 200910
  2. TERBINAFINE [Suspect]
     Active Substance: TERBINAFINE
     Indication: Tinea barbae
  3. VANCOMYCIN [Suspect]
     Active Substance: VANCOMYCIN
     Indication: Trichophytosis
     Dosage: UNK, STARTED 4 DAYS PRIOR TO ERYTHEMA NODOSUM
     Route: 065
     Dates: start: 200910
  4. VANCOMYCIN [Suspect]
     Active Substance: VANCOMYCIN
     Indication: Tinea barbae
  5. KETOCONAZOLE [Suspect]
     Active Substance: KETOCONAZOLE
     Indication: Trichophytosis
     Dosage: 100 MG
     Route: 048
  6. KETOCONAZOLE [Suspect]
     Active Substance: KETOCONAZOLE
     Indication: Tinea barbae
  7. FLUCONAZOLE [Suspect]
     Active Substance: FLUCONAZOLE
     Indication: Trichophytosis
     Dosage: 100 MG, QD
     Route: 042
     Dates: start: 200910
  8. CEFTRIAXONE [Suspect]
     Active Substance: CEFTRIAXONE
     Indication: Trichophytosis
     Dosage: 2 G, QD
     Route: 042
     Dates: start: 200910
  9. CEFTRIAXONE [Suspect]
     Active Substance: CEFTRIAXONE
     Indication: Tinea barbae
  10. AMOXICILLIN\CLAVULANIC ACID [Suspect]
     Active Substance: AMOXICILLIN\CLAVULANIC ACID
     Indication: Trichophytosis
     Dosage: 1.2 G, BID (STARTED FOR 8 DAYS)
     Route: 042
     Dates: start: 200910

REACTIONS (5)
  - Arthritis [Recovering/Resolving]
  - Dermatitis [Recovering/Resolving]
  - Erythema nodosum [Recovering/Resolving]
  - Abdominal pain [Recovering/Resolving]
  - Drug ineffective [Unknown]

NARRATIVE: CASE EVENT DATE: 20091001
